FAERS Safety Report 11471944 (Version 2)
Quarter: 2015Q3

REPORT INFORMATION
  Report Type: Spontaneous
  Country: IT (occurrence: IT)
  Receive Date: 20150908
  Receipt Date: 20150921
  Transmission Date: 20151125
  Serious: Yes (Other)
  Sender: FDA-Public Use
  Company Number: IT-PRESTIUM-2015RN000065

PATIENT
  Age: 55 Year
  Sex: Female

DRUGS (2)
  1. ACICLOVIR [Suspect]
     Active Substance: ACYCLOVIR
     Indication: HERPES ZOSTER
     Dosage: 1 DF, QD
     Route: 048
     Dates: start: 20150729, end: 20150807
  2. NEURABEN [Suspect]
     Active Substance: CYANOCOBALAMIN\PYRIDOXINE\THIAMINE
     Indication: POLYNEUROPATHY
     Dosage: 1 DF, QD
     Route: 048
     Dates: start: 20150801, end: 20150807

REACTIONS (3)
  - Toxic skin eruption [Recovered/Resolved]
  - Solar dermatitis [Recovered/Resolved]
  - Arthralgia [Recovered/Resolved]

NARRATIVE: CASE EVENT DATE: 20150807
